FAERS Safety Report 15168779 (Version 4)
Quarter: 2019Q1

REPORT INFORMATION
  Report Type: Report from Study
  Country: DE (occurrence: DE)
  Receive Date: 20180720
  Receipt Date: 20190103
  Transmission Date: 20190417
  Serious: Yes (Life-Threatening, Hospitalization)
  Sender: FDA-Public Use
  Company Number: DE-BAXTER-2018BAX019587

PATIENT
  Age: 47 Year
  Sex: Male
  Weight: 85 kg

DRUGS (26)
  1. FILGRASTIM [Concomitant]
     Active Substance: FILGRASTIM
     Indication: PROPHYLAXIS
     Dosage: DOSAGE FORM: UNSPECIFIED
     Route: 065
     Dates: start: 20180314
  2. UROMITEXAN 400 MG [Suspect]
     Active Substance: MESNA
     Dosage: LAST DOSE PRIOR TO SAE
     Route: 042
     Dates: start: 20180608, end: 20180608
  3. DEXAMETHASONE. [Concomitant]
     Active Substance: DEXAMETHASONE
     Indication: PROPHYLAXIS
     Dosage: DOSAGE FORM: UNSPECIFIED
     Route: 065
     Dates: start: 20180314
  4. BEPANTHENOL [Concomitant]
     Indication: DRUG THERAPY
     Dosage: DOSAGE FORM: UNSPECIFIED
     Route: 065
     Dates: start: 20180424
  5. METAMIZOLE MAGNESIUM [Concomitant]
     Active Substance: METAMIZOLE MAGNESIUM
     Indication: PROPHYLAXIS
     Dosage: DOSAGE FORM: UNSPECIFIED
     Route: 065
     Dates: start: 20180314
  6. VOMEX A [Concomitant]
     Active Substance: DIMENHYDRINATE
     Indication: NAUSEA
     Route: 065
     Dates: start: 20180607, end: 20180611
  7. HOLOXAN [Suspect]
     Active Substance: IFOSFAMIDE
     Indication: SOFT TISSUE SARCOMA
     Dosage: DOSAGE FORM: UNSPECIFIED, ON DAYS 1 TO 4 OF 21 DAY CYCLE
     Route: 042
     Dates: start: 20180313
  8. DOXORUBICIN [Suspect]
     Active Substance: DOXORUBICIN
     Indication: SARCOMA METASTATIC
     Dosage: LAST DOSE PRIOR TO SAE
     Route: 042
     Dates: start: 20180607, end: 20180607
  9. PIRACETAM [Concomitant]
     Active Substance: PIRACETAM
     Indication: DRUG THERAPY
     Dosage: DOSAGE FORM: UNSPECIFIED
     Route: 065
     Dates: start: 20180313, end: 20180629
  10. HOLOXAN [Suspect]
     Active Substance: IFOSFAMIDE
     Indication: SARCOMA METASTATIC
     Dosage: LAST DOSE PRIOR TO SAE
     Route: 042
     Dates: start: 20180608, end: 20180608
  11. DEXRAZOXANE. [Concomitant]
     Active Substance: DEXRAZOXANE
     Indication: DRUG THERAPY
     Dosage: DOSAGE FORM: UNSPECIFIED
     Route: 065
     Dates: start: 20180313, end: 20180828
  12. FUROSEMIDE. [Concomitant]
     Active Substance: FUROSEMIDE
     Indication: DRUG THERAPY
     Dosage: DOSAGE FORM: UNSPECIFIED
     Route: 065
     Dates: start: 20180313, end: 20180629
  13. CEFALEXIN [Concomitant]
     Active Substance: CEPHALEXIN
     Indication: ABSCESS
     Dosage: DOSAGE FORM: UNSPECIFIED
     Route: 065
     Dates: start: 20180515
  14. PANTOPRAZOL [Concomitant]
     Active Substance: PANTOPRAZOLE SODIUM
     Indication: PROPHYLAXIS
     Dosage: DOSAGE FORM: UNSPECIFIED
     Route: 065
     Dates: start: 20180314
  15. UREA. [Concomitant]
     Active Substance: UREA
     Indication: PROPHYLAXIS
     Dosage: DOSAGE FORM: UNSPECIFIED
     Route: 065
     Dates: start: 20180410
  16. UROMITEXAN 400 MG [Suspect]
     Active Substance: MESNA
     Indication: PROPHYLAXIS
     Dosage: DOSAGE FORM: UNSPECIFIED, CYCLICAL
     Route: 042
     Dates: start: 20180313, end: 20180313
  17. OLARATUMAB [Suspect]
     Active Substance: OLARATUMAB
     Indication: SOFT TISSUE SARCOMA
     Dosage: DOSAGE FORM: UNSPECIFIED, ON DAY 1 AND 8
     Route: 042
     Dates: start: 20180313
  18. DOXORUBICIN [Suspect]
     Active Substance: DOXORUBICIN
     Indication: SOFT TISSUE SARCOMA
     Dosage: ON DAYS 1 TO 3
     Route: 042
     Dates: start: 20180313
  19. OLARATUMAB [Suspect]
     Active Substance: OLARATUMAB
     Indication: SARCOMA METASTATIC
     Dosage: LAST DOSE PRIOR TO SAE
     Route: 042
     Dates: start: 20180605, end: 20180605
  20. ALIZAPRIDA [Concomitant]
     Indication: PROPHYLAXIS
     Dosage: DOSAGE FORM: UNSPECIFIED
     Route: 065
     Dates: start: 20180314
  21. ONDANSETRON [Concomitant]
     Active Substance: ONDANSETRON
     Indication: PROPHYLAXIS
     Dosage: DOSAGE FORM: UNSPECIFIED
     Route: 065
     Dates: start: 20180314
  22. METROCREME [Concomitant]
     Indication: SCROTAL ABSCESS
     Dosage: DOSAGE FORM: UNSPECIFIED
     Route: 065
     Dates: start: 20180327
  23. MOVICOL [Concomitant]
     Active Substance: POLYETHYLENE GLYCOL 3350\POTASSIUM CHLORIDE\SODIUM BICARBONATE\SODIUM CHLORIDE
     Indication: CONSTIPATION
     Dosage: DOSAGE FORM: UNSPECIFIED
     Route: 065
     Dates: start: 20180320
  24. TAVEGIL [Concomitant]
     Active Substance: CLEMASTINE FUMARATE
     Indication: DRUG THERAPY
     Route: 065
     Dates: start: 20180313, end: 20180629
  25. CLEMASTINE [Concomitant]
     Active Substance: CLEMASTINE
     Indication: DRUG THERAPY
     Dosage: DOSAGE FORM: UNSPECIFIED
     Route: 065
     Dates: start: 20180313
  26. LAXAN [Concomitant]
     Indication: CONSTIPATION
     Route: 065
     Dates: start: 20180605, end: 20180610

REACTIONS (3)
  - Product use in unapproved indication [Unknown]
  - Off label use [Unknown]
  - Febrile neutropenia [Recovered/Resolved]

NARRATIVE: CASE EVENT DATE: 20180313
